FAERS Safety Report 7982451-1 (Version None)
Quarter: 2011Q4

REPORT INFORMATION
  Report Type: 
  Country: None (occurrence: None)
  Receive Date: 20111215
  Receipt Date: 20111212
  Transmission Date: 20120403
  Serious: Yes (Hospitalization, Other)
  Sender: FDA-Public Use
  Company Number: PHHY2010CA87230

PATIENT
  Sex: Female

DRUGS (2)
  1. DICLOFENAC SODIUM [Concomitant]
     Dosage: UNK UKN, UNK
  2. ACLASTA [Suspect]
     Indication: OSTEOPOROSIS
     Dosage: UNK UKN, UNK
     Route: 042
     Dates: start: 20100127

REACTIONS (7)
  - PAIN [None]
  - BACK PAIN [None]
  - PELVIC FRACTURE [None]
  - CLAVICLE FRACTURE [None]
  - SCIATICA [None]
  - FALL [None]
  - PAIN IN EXTREMITY [None]
